FAERS Safety Report 17530533 (Version 1)
Quarter: 2020Q1

REPORT INFORMATION
  Report Type: Spontaneous
  Country: FR (occurrence: FR)
  Receive Date: 20200311
  Receipt Date: 20200311
  Transmission Date: 20200409
  Serious: Yes (Other)
  Sender: FDA-Public Use
  Company Number: FR-MYLANLABS-2020M1025971

PATIENT
  Age: 57 Year
  Sex: Female

DRUGS (5)
  1. CERAZETTE                          /00754001/ [Suspect]
     Active Substance: DESOGESTREL
     Indication: CONTRACEPTION
     Dosage: 1 DOSAGE FORM, QD
     Route: 048
     Dates: end: 20181201
  2. PROGESTAN [Suspect]
     Active Substance: PROGESTERONE
     Indication: HORMONE REPLACEMENT THERAPY
     Dosage: 100 MILLIGRAM, QD
     Route: 048
     Dates: start: 20191003, end: 20191010
  3. OESTRODOSE [Suspect]
     Active Substance: ESTRADIOL
     Indication: HORMONE REPLACEMENT THERAPY
     Dosage: 1 DOSAGE FORM, QD
     Route: 003
     Dates: start: 20191003, end: 20191010
  4. UTROGESTAN [Suspect]
     Active Substance: PROGESTERONE
     Indication: HORMONE REPLACEMENT THERAPY
     Dosage: 1 DOSAGE FORM, QD
     Route: 048
     Dates: start: 20190707, end: 20191002
  5. OROMONE [Suspect]
     Active Substance: ESTRADIOL
     Indication: HORMONE REPLACEMENT THERAPY
     Dosage: 1 DOSAGE FORM, QD
     Route: 048
     Dates: start: 20190707, end: 20191002

REACTIONS (1)
  - Meningioma [Not Recovered/Not Resolved]
